FAERS Safety Report 17118276 (Version 1)
Quarter: 2019Q4

REPORT INFORMATION
  Report Type: Spontaneous
  Country: US (occurrence: US)
  Receive Date: 20191205
  Receipt Date: 20191205
  Transmission Date: 20200122
  Serious: Yes (Death)
  Sender: FDA-Public Use
  Company Number: US-TEVA-2019-US-1146525

PATIENT
  Age: 61 Year
  Sex: Male

DRUGS (4)
  1. DEXAMETHASONE. [Suspect]
     Active Substance: DEXAMETHASONE
     Indication: HAEMOPHAGOCYTIC LYMPHOHISTIOCYTOSIS
     Dosage: 10 MG/M2 DAILY;
     Route: 065
  2. ETOPOSIDE. [Suspect]
     Active Substance: ETOPOSIDE
     Indication: HAEMOPHAGOCYTIC LYMPHOHISTIOCYTOSIS
     Dosage: DOSE-REDUCED
     Route: 065
  3. IBRUTINIB [Suspect]
     Active Substance: IBRUTINIB
     Indication: CHRONIC LYMPHOCYTIC LEUKAEMIA
     Route: 065
  4. IMMUNOGLOBULIN (IVIG) [Suspect]
     Active Substance: HUMAN IMMUNOGLOBULIN G
     Indication: HAEMOPHAGOCYTIC LYMPHOHISTIOCYTOSIS
     Dosage: 0.5 G/KG
     Route: 042

REACTIONS (3)
  - Haemophagocytic lymphohistiocytosis [Fatal]
  - Drug ineffective [Fatal]
  - Multiple organ dysfunction syndrome [Fatal]
